FAERS Safety Report 9827997 (Version 2)
Quarter: 2014Q1

REPORT INFORMATION
  Report Type: Report from Study
  Country: US (occurrence: US)
  Receive Date: 20140117
  Receipt Date: 20140117
  Transmission Date: 20141002
  Serious: Yes (Hospitalization)
  Sender: FDA-Public Use
  Company Number: US-ACTELION-A-NJ2013-81575

PATIENT
  Age: 73 Year
  Sex: Female

DRUGS (25)
  1. TRACLEER [Suspect]
     Indication: PULMONARY ARTERIAL HYPERTENSION
     Dosage: 62.5 MG, BID
     Route: 048
     Dates: start: 201303, end: 20130417
  2. TRACLEER [Suspect]
     Dosage: 125 MG, BID
     Route: 048
     Dates: start: 20130418
  3. ADCIRCA [Concomitant]
     Dosage: 20 MG, QD
     Dates: start: 201303
  4. HUMIRA [Concomitant]
     Dosage: 40 MG, TWICE MONTHLY
  5. PREDNISONE [Concomitant]
     Dosage: 2.5 MG TO 5 MG, QD
  6. ACTOS [Concomitant]
     Dosage: 30 MG, QD
  7. CRESTOR [Concomitant]
     Dosage: 5 MG, QD
  8. DEXLANSOPRAZOLE [Concomitant]
     Dosage: 60 MG, QD
  9. FOLIC ACID [Concomitant]
     Dosage: 1 MG, QD
  10. LEVOTHYROXINE [Concomitant]
     Dosage: 50 MCG, QD
  11. LOTENSIN HCT [Concomitant]
     Dosage: 20/12.5, QD
  12. METHOTREXATE [Concomitant]
     Dosage: 2.5 MG, Q1WEEK
  13. NAPROXEN [Concomitant]
     Dosage: 500 MG, PRN
  14. VALTREX [Concomitant]
     Dosage: 1 G, PRN
  15. ACETYLSALICYLIC ACID [Concomitant]
     Dosage: 81 MG, QD
  16. POTASSIUM [Concomitant]
     Dosage: 1080 MG, QD
  17. BETA CAROTENE [Concomitant]
     Dosage: 25000 IU, QD
  18. B COMPLEX [Concomitant]
     Dosage: UNK, QD
  19. IRON W/VITAMIN C [Concomitant]
     Dosage: 500 MG, QD
  20. CALCIUM + VITAMIN D [Concomitant]
     Dosage: 600 MG, BID
  21. VITAMIN D [Concomitant]
     Dosage: 1000 IU, BID
  22. VITAMIN E [Concomitant]
     Dosage: 400 MG, BID
  23. FISH OIL [Concomitant]
     Dosage: 2 TO 4 TABS, QD
  24. ZINC [Concomitant]
     Dosage: UNK, QD
  25. MULTIVITAMINS PLUS IRON [Concomitant]
     Dosage: UNK, BID

REACTIONS (11)
  - Meningitis [Unknown]
  - Intervertebral disc protrusion [Unknown]
  - Local swelling [Not Recovered/Not Resolved]
  - Chest discomfort [Recovered/Resolved]
  - Somnolence [Recovering/Resolving]
  - Sinusitis [Not Recovered/Not Resolved]
  - Condition aggravated [Not Recovered/Not Resolved]
  - Dyspnoea [Unknown]
  - Dizziness [Unknown]
  - Sinus disorder [Unknown]
  - Constipation [Unknown]
